FAERS Safety Report 8645136 (Version 3)
Quarter: 2013Q1

REPORT INFORMATION
  Report Type: Spontaneous
  Country: EC (occurrence: EC)
  Receive Date: 20120702
  Receipt Date: 20130114
  Transmission Date: 20140127
  Serious: Yes (Disabling, Other)
  Sender: FDA-Public Use
  Company Number: PHHY2012EC055731

PATIENT
  Age: 73 Year
  Sex: Female

DRUGS (5)
  1. ACLASTA [Suspect]
     Indication: OSTEOPOROSIS
     Dosage: 5 MG, UNK
     Route: 042
     Dates: start: 20080906
  2. ACLASTA [Suspect]
     Dosage: 4 MG, YEARLY
     Route: 042
     Dates: start: 20090531
  3. EXFORGE [Concomitant]
     Indication: HYPERTENSION
  4. CONCOR [Concomitant]
     Dosage: 5 MG, QD
     Dates: start: 2008, end: 201111
  5. TENORETIC [Concomitant]
     Dosage: 50 MG, QD
     Dates: start: 201111

REACTIONS (9)
  - Dislocation of vertebra [Unknown]
  - Muscular weakness [Recovering/Resolving]
  - Back pain [Unknown]
  - Fall [Recovering/Resolving]
  - Joint injury [Recovering/Resolving]
  - Muscle contracture [Recovering/Resolving]
  - Incorrect dose administered [Unknown]
  - Inappropriate schedule of drug administration [Unknown]
  - Pain in extremity [Recovering/Resolving]
